FAERS Safety Report 5139409-X (Version None)
Quarter: 2006Q4

REPORT INFORMATION
  Report Type: 
  Country: None (occurrence: None)
  Receive Date: 20061030
  Receipt Date: 20051213
  Transmission Date: 20070319
  Serious: No
  Sender: FDA-Public Use
  Company Number: US-GLAXOSMITHKLINE-A0585709A

PATIENT
  Age: 70 Year
  Sex: Female

DRUGS (4)
  1. SEREVENT [Suspect]
     Indication: ASTHMA
     Dosage: 1PUFF TWICE PER DAY
     Route: 055
     Dates: start: 20051001
  2. XOPENEX [Concomitant]
  3. ALBUTEROL [Concomitant]
  4. CHROMELIN [Concomitant]

REACTIONS (2)
  - ALOPECIA [None]
  - POOR QUALITY DRUG ADMINISTERED [None]
